FAERS Safety Report 8606327-1 (Version None)
Quarter: 2012Q3

REPORT INFORMATION
  Report Type: 
  Country: None (occurrence: None)
  Receive Date: 20120820
  Receipt Date: 20120809
  Transmission Date: 20120928
  Serious: Yes (Hospitalization)
  Sender: FDA-Public Use
  Company Number: BR-ASTRAZENECA-2012SE57046

PATIENT
  Age: 61 Year
  Sex: Female

DRUGS (2)
  1. ATACAND HCT [Suspect]
     Dosage: OD/NIGHT
     Route: 048
  2. ATACAND [Suspect]
     Route: 048

REACTIONS (4)
  - ABDOMINAL PAIN UPPER [None]
  - SKIN SWELLING [None]
  - ERYTHEMA [None]
  - DRUG HYPERSENSITIVITY [None]
